FAERS Safety Report 6356032-X (Version None)
Quarter: 2009Q3

REPORT INFORMATION
  Report Type: 
  Country: None (occurrence: None)
  Receive Date: 20090910
  Receipt Date: 20090910
  Transmission Date: 20100115
  Serious: Yes (Hospitalization)
  Sender: FDA-Public Use
  Company Number: None

PATIENT
  Sex: Male
  Weight: 69.9 kg

DRUGS (1)
  1. MEMANTINE HCL [Suspect]
     Dosage: 2030 MG

REACTIONS (3)
  - LUNG NEOPLASM [None]
  - LYMPHADENOPATHY [None]
  - METASTASES TO BONE [None]
